FAERS Safety Report 4843082-5 (Version None)
Quarter: 2005Q4

REPORT INFORMATION
  Report Type: 
  Country: None (occurrence: None)
  Receive Date: 20051201
  Receipt Date: 20051010
  Transmission Date: 20060501
  Serious: Yes (Other)
  Sender: FDA-Public Use
  Company Number: US-ABBOTT-05P-163-0313273-00

PATIENT
  Sex: Female

DRUGS (3)
  1. DEPAKOTE [Suspect]
     Indication: SCHIZOPHRENIA, UNDIFFERENTIATED TYPE
     Dosage: NOT REPORTED
     Dates: start: 20050301, end: 20050801
  2. DEPAKOTE [Suspect]
     Dates: start: 20050801, end: 20050825
  3. CLOZAPINE [Concomitant]
     Indication: DRUG USE FOR UNKNOWN INDICATION
     Dosage: AT HS
     Dates: start: 20050301, end: 20050901

REACTIONS (1)
  - LIVER TRANSPLANT [None]
